FAERS Safety Report 13466739 (Version 2)
Quarter: 2017Q2

REPORT INFORMATION
  Report Type: Report from Study
  Country: US (occurrence: US)
  Receive Date: 20170421
  Receipt Date: 20170515
  Transmission Date: 20170830
  Serious: Yes (Other)
  Sender: FDA-Public Use
  Company Number: PHEH2017US011008

PATIENT
  Sex: Female

DRUGS (1)
  1. AFINITOR [Suspect]
     Active Substance: EVEROLIMUS
     Indication: PRODUCT USED FOR UNKNOWN INDICATION
     Route: 065

REACTIONS (11)
  - Insomnia [Unknown]
  - Anxiety [Unknown]
  - Decreased appetite [Unknown]
  - Panic attack [Unknown]
  - Abdominal pain upper [Unknown]
  - Epistaxis [Recovered/Resolved]
  - Internal haemorrhage [Unknown]
  - Heart rate increased [Unknown]
  - Diarrhoea [Unknown]
  - Weight decreased [Unknown]
  - Agitation [Unknown]
